FAERS Safety Report 7622336 (Version 4)
Quarter: 2013Q1

REPORT INFORMATION
  Report Type: Spontaneous
  Country: BR (occurrence: BR)
  Receive Date: 20100503
  Receipt Date: 20130302
  Transmission Date: 20140127
  Serious: Yes (Life-Threatening, Hospitalization, Other)
  Sender: FDA-Public Use
  Company Number: PHHY2010BR26212

PATIENT
  Age: 58 Year
  Sex: Female

DRUGS (9)
  1. DIOVAN AMLO FIX [Suspect]
     Indication: HYPERTENSION
     Dosage: 1 DF (320MG VALS/5MG AMLO), DAILY
     Route: 048
     Dates: start: 2009
  2. LOSARTAN [Suspect]
     Indication: HYPERTENSION
     Dosage: 2 DF, DAILY
     Route: 048
  3. DIVELOL [Concomitant]
     Indication: CARDIAC DISORDER
     Dosage: 2 DF, DAILY
     Route: 048
  4. SIMVASTATIN [Concomitant]
     Indication: BLOOD CHOLESTEROL INCREASED
     Dosage: 20 MG, (2 TABLETS DAILY)
     Route: 048
  5. SIMVASTATIN [Concomitant]
     Indication: BLOOD CHOLESTEROL ABNORMAL
     Dosage: 20 MG, (1 TABLET DAILY)
     Route: 048
  6. AAS [Concomitant]
     Indication: ANTICOAGULANT THERAPY
     Dosage: 100 MG, (1 TABLET DAILY)
     Route: 048
  7. INSULIN [Concomitant]
     Indication: TYPE 2 DIABETES MELLITUS
     Dosage: 20 IU, DAILY
     Route: 058
  8. LANTUS [Concomitant]
     Indication: TYPE 2 DIABETES MELLITUS
     Dosage: 20UI IN THE MORNING, 10 UI IN THE AFTERNOON AND 20UI AT NIGHT,
     Route: 058
  9. SINVALIP [Concomitant]
     Indication: BLOOD CHOLESTEROL INCREASED
     Dosage: 1 DF, DAILY
     Route: 048

REACTIONS (21)
  - Feeling abnormal [Recovered/Resolved]
  - Renal disorder [Recovered/Resolved]
  - Localised intraabdominal fluid collection [Recovered/Resolved]
  - Fluid retention [Recovered/Resolved]
  - Blood sodium decreased [Recovered/Resolved]
  - Blood potassium increased [Recovered/Resolved]
  - Hypertension [Recovered/Resolved]
  - Blood pressure fluctuation [Recovered/Resolved]
  - Laryngeal oedema [Recovered/Resolved]
  - Generalised oedema [Recovered/Resolved]
  - Swelling face [Recovered/Resolved]
  - Local swelling [Recovered/Resolved]
  - Pharyngeal oedema [Recovered/Resolved]
  - Dyspnoea [Recovered/Resolved]
  - Hypersensitivity [Recovered/Resolved]
  - Drug hypersensitivity [Unknown]
  - Cough [Recovered/Resolved]
  - Gait disturbance [Recovered/Resolved]
  - Joint swelling [Recovered/Resolved]
  - Local swelling [Recovered/Resolved]
  - Asthenia [Recovered/Resolved]
